FAERS Safety Report 5605465-5 (Version None)
Quarter: 2008Q1

REPORT INFORMATION
  Report Type: 
  Country: None (occurrence: None)
  Receive Date: 20080124
  Receipt Date: 20080124
  Transmission Date: 20080703
  Serious: Yes (Hospitalization)
  Sender: FDA-Public Use
  Company Number: None

PATIENT
  Sex: Male
  Weight: 92.3 kg

DRUGS (2)
  1. CISPLATIN [Suspect]
     Dosage: 168 MG
     Dates: end: 20080103
  2. GEMCITABINE HCL [Suspect]
     Dosage: 4703 MG; DOSE REDUCED DUE TO ANC OF .74
     Dates: end: 20080110

REACTIONS (2)
  - HAEMOGLOBIN DECREASED [None]
  - PLATELET COUNT DECREASED [None]
